FAERS Safety Report 17426914 (Version 1)
Quarter: 2020Q1

REPORT INFORMATION
  Report Type: Spontaneous
  Country: FR (occurrence: FR)
  Receive Date: 20200218
  Receipt Date: 20200218
  Transmission Date: 20200409
  Serious: Yes (Hospitalization)
  Sender: FDA-Public Use
  Company Number: FR-TEVA-2020-FR-1187397

PATIENT
  Age: 87 Year
  Sex: Female
  Weight: 90 kg

DRUGS (7)
  1. VANCOMYCIN [Suspect]
     Active Substance: VANCOMYCIN
     Indication: SEPSIS
     Dosage: 3 G
     Route: 042
     Dates: start: 20191129, end: 20191207
  2. X PREP [Concomitant]
     Indication: CONSTIPATION
     Route: 048
     Dates: start: 20191202, end: 20191202
  3. SERESTA [Concomitant]
     Active Substance: OXAZEPAM
     Indication: ANXIETY
     Dosage: 10 MG
     Route: 048
     Dates: end: 20191213
  4. GENTAMICINE [Concomitant]
     Active Substance: GENTAMICIN
     Indication: SEPSIS
     Dosage: 240 MG
     Route: 042
     Dates: start: 20191129, end: 20191130
  5. FUROSEMIDE. [Concomitant]
     Active Substance: FUROSEMIDE
     Indication: CARDIAC FAILURE
     Dosage: 80 MG
     Route: 048
     Dates: start: 20191203, end: 20191209
  6. CEFTRIAXONE BASE [Concomitant]
     Active Substance: CEFTRIAXONE
     Indication: SEPSIS
     Dosage: 1 G
     Route: 042
     Dates: start: 20191128, end: 20191204
  7. MACROGOL (?THER ST?ARYLIQUE DE) [Concomitant]
     Active Substance: POLYETHYLENE GLYCOLS
     Indication: CONSTIPATION
     Dosage: 1 DF
     Route: 048
     Dates: start: 20191202, end: 20191212

REACTIONS (1)
  - Acute kidney injury [Recovering/Resolving]

NARRATIVE: CASE EVENT DATE: 20191208
